FAERS Safety Report 9881521 (Version 1)
Quarter: 2014Q1

REPORT INFORMATION
  Report Type: Spontaneous
  Country: US (occurrence: US)
  Receive Date: 20140207
  Receipt Date: 20140207
  Transmission Date: 20141002
  Serious: Yes (Hospitalization)
  Sender: FDA-Public Use
  Company Number: US-PFIZER INC-2014032491

PATIENT
  Age: 63 Year
  Sex: Female

DRUGS (3)
  1. ENBREL [Suspect]
     Dosage: UNK
     Route: 065
  2. OXYCODONE HYDROCHLORIDE [Suspect]
  3. FENTANYL [Suspect]

REACTIONS (4)
  - Drug withdrawal syndrome [Unknown]
  - Fall [Recovered/Resolved]
  - Hip fracture [Unknown]
  - Pain [Unknown]
